FAERS Safety Report 8989111 (Version 1)
Quarter: 2012Q4

REPORT INFORMATION
  Report Type: 
  Country: US (occurrence: US)
  Receive Date: 20121228
  Receipt Date: 20121228
  Transmission Date: 20130627
  Serious: Yes (Other)
  Sender: FDA-Public Use
  Company Number: US-ELI_LILLY_AND_COMPANY-US201212007051

PATIENT
  Age: 55 Year
  Sex: Male

DRUGS (6)
  1. CYMBALTA [Suspect]
     Indication: ANXIETY
     Dosage: 90 mg, qod
  2. CYMBALTA [Suspect]
     Dosage: 60 mg, qod
  3. CYMBALTA [Suspect]
     Dosage: 30 mg, qd
  4. CYMBALTA [Suspect]
     Dosage: 30 mg, qod
  5. CLONAZEPAM [Concomitant]
  6. SEROQUEL [Concomitant]

REACTIONS (9)
  - Intentional self-injury [Unknown]
  - Fear [Unknown]
  - Feeling abnormal [Unknown]
  - Dizziness [Unknown]
  - Tinnitus [Unknown]
  - Anxiety [Unknown]
  - Drug withdrawal syndrome [Unknown]
  - Feeling abnormal [Unknown]
  - Tinnitus [Unknown]
